FAERS Safety Report 7313577-3 (Version None)
Quarter: 2011Q1

REPORT INFORMATION
  Report Type: 
  Country: None (occurrence: None)
  Receive Date: 20110215
  Receipt Date: 20110215
  Transmission Date: 20110831
  Serious: Yes (Other)
  Sender: FDA-Public Use
  Company Number: None

PATIENT
  Age: 58 Year
  Sex: Female
  Weight: 77.5651 kg

DRUGS (2)
  1. LEVAQUIN [Suspect]
     Indication: PNEUMONIA
     Dosage: IV
     Route: 042
     Dates: start: 20110125, end: 20110128
  2. LEVAQUIN [Suspect]
     Indication: PNEUMONIA
     Dosage: 1 TABLET 1 PER DAY PO (SKIPPED 3 DAYS -TOOK 5 DA
     Route: 048
     Dates: start: 20110128, end: 20110207

REACTIONS (6)
  - PAIN [None]
  - TENDON DISORDER [None]
  - MOBILITY DECREASED [None]
  - WEIGHT BEARING DIFFICULTY [None]
  - WALKING AID USER [None]
  - TENDON PAIN [None]
